FAERS Safety Report 12375046 (Version 4)
Quarter: 2016Q2

REPORT INFORMATION
  Report Type: Spontaneous
  Country: JP (occurrence: JP)
  Receive Date: 20160517
  Receipt Date: 20160602
  Transmission Date: 20160815
  Serious: Yes (Death, Life-Threatening, Hospitalization)
  Sender: FDA-Public Use
  Company Number: JP-ROCHE-1759230

PATIENT
  Age: 70 Year
  Sex: Male
  Weight: 54 kg

DRUGS (18)
  1. SODIUM FERROUS CITRATE [Concomitant]
     Active Substance: SODIUM FERROUS CITRATE
     Indication: ANAEMIA
     Dosage: THE FRACTIONATION DOSE FREQUENCY IS UNCERTAIN. ?DOSE INTERVAL UNCERTAINTY
     Route: 065
     Dates: start: 2014
  2. BLOPRESS [Concomitant]
     Active Substance: CANDESARTAN CILEXETIL
     Indication: CARDIAC FAILURE
     Dosage: THE FRACTIONATION DOSE FREQUENCY IS UNCERTAIN. ?DOSE INTERVAL UNCERTAINTY
     Route: 065
     Dates: start: 2001
  3. VERAPAMIL HYDROCHLORIDE. [Concomitant]
     Active Substance: VERAPAMIL HYDROCHLORIDE
     Indication: CARDIAC FAILURE
     Dosage: THE FRACTIONATION DOSE FREQUENCY IS UNCERTAIN. ?DOSE INTERVAL UNCERTAINTY
     Route: 065
     Dates: start: 2001
  4. TRAMAL [Concomitant]
     Active Substance: TRAMADOL
     Indication: CANCER PAIN
     Dosage: THE FRACTIONATION DOSE FREQUENCY IS UNCERTAIN. ?DOSE INTERVAL UNCERTAINTY
     Route: 065
     Dates: start: 2014
  5. GRANISETRON [Concomitant]
     Active Substance: GRANISETRON
     Indication: GASTRIC CANCER
     Route: 042
     Dates: start: 20140729, end: 20140729
  6. XELODA [Suspect]
     Active Substance: CAPECITABINE
     Indication: GASTRIC CANCER
     Dosage: DOSAGE IS UNCERTAIN.
     Route: 048
     Dates: start: 20140729, end: 20140805
  7. CISPLATIN. [Suspect]
     Active Substance: CISPLATIN
     Indication: GASTRIC CANCER
     Dosage: DOSAGE IS UNCERTAIN.
     Route: 041
     Dates: start: 20140729, end: 20140729
  8. CELECOX [Concomitant]
     Active Substance: CELECOXIB
     Indication: CANCER PAIN
     Dosage: THE FRACTIONATION DOSE FREQUENCY IS UNCERTAIN. ?DOSE INTERVAL UNCERTAINTY
     Route: 065
     Dates: start: 2014
  9. ASPIRIN. [Concomitant]
     Active Substance: ASPIRIN
     Indication: CARDIAC FAILURE
     Dosage: THE FRACTIONATION DOSE FREQUENCY IS UNCERTAIN. ?DOSE INTERVAL UNCERTAINTY
     Route: 065
     Dates: start: 2001
  10. PLAVIX [Concomitant]
     Active Substance: CLOPIDOGREL BISULFATE
     Indication: CARDIAC FAILURE
     Dosage: THE FRACTIONATION DOSE FREQUENCY IS UNCERTAIN. ?DOSE INTERVAL UNCERTAINTY
     Route: 065
     Dates: start: 2001
  11. ARTIST [Concomitant]
     Active Substance: CARVEDILOL
     Indication: CARDIAC FAILURE
     Dosage: THE FRACTIONATION DOSE FREQUENCY IS UNCERTAIN. ?DOSE INTERVAL UNCERTAINTY
     Route: 065
     Dates: start: 2001
  12. FUROSEMIDE. [Concomitant]
     Active Substance: FUROSEMIDE
     Route: 042
     Dates: start: 20140729, end: 20140731
  13. HERCEPTIN [Suspect]
     Active Substance: TRASTUZUMAB
     Indication: GASTRIC CANCER
     Dosage: DOSAGE IS UNCERTAIN.
     Route: 041
  14. DECADRON [Concomitant]
     Active Substance: DEXAMETHASONE
     Indication: GASTRIC CANCER
     Route: 042
     Dates: start: 20140729, end: 20140731
  15. NICORANDIL [Concomitant]
     Active Substance: NICORANDIL
     Indication: CARDIAC FAILURE
     Dosage: THE FRACTIONATION DOSE FREQUENCY IS UNCERTAIN. ?DOSE INTERVAL UNCERTAINTY
     Route: 065
     Dates: start: 2001
  16. PROEMEND [Concomitant]
     Active Substance: FOSAPREPITANT
     Indication: GASTRIC CANCER
     Route: 042
     Dates: start: 20140729, end: 20140729
  17. LANSOPRAZOLE. [Concomitant]
     Active Substance: LANSOPRAZOLE
     Indication: CARDIAC FAILURE
     Dosage: THE FRACTIONATION DOSE FREQUENCY IS UNCERTAIN. ?DOSE INTERVAL UNCERTAINTY
     Route: 065
     Dates: start: 2001
  18. ATORVASTATIN [Concomitant]
     Active Substance: ATORVASTATIN
     Indication: HYPERCHOLESTEROLAEMIA
     Dosage: THE FRACTIONATION DOSE FREQUENCY IS UNCERTAIN. ?DOSE INTERVAL UNCERTAINTY
     Route: 065
     Dates: start: 2001

REACTIONS (4)
  - Peritonitis [Recovered/Resolved]
  - Disease progression [Fatal]
  - Gastric perforation [Recovered/Resolved]
  - Diverticular perforation [Recovered/Resolved]

NARRATIVE: CASE EVENT DATE: 201408
